FAERS Safety Report 19052154 (Version 2)
Quarter: 2021Q2

REPORT INFORMATION
  Report Type: Spontaneous
  Country: US (occurrence: US)
  Receive Date: 20210324
  Receipt Date: 20210614
  Transmission Date: 20210717
  Serious: Yes (Other)
  Sender: FDA-Public Use
  Company Number: US-B.I. PHARMACEUTICALS,INC./RIDGEFIELD-2021-BI-091164

PATIENT
  Age: 78 Year
  Sex: Female

DRUGS (1)
  1. PRADAXA [Suspect]
     Active Substance: DABIGATRAN ETEXILATE MESYLATE
     Indication: PRODUCT USED FOR UNKNOWN INDICATION
     Dosage: 150MG BID
     Route: 065
     Dates: start: 2016

REACTIONS (5)
  - Lung neoplasm [Unknown]
  - Hepatic neoplasm [Unknown]
  - Blood viscosity decreased [Not Recovered/Not Resolved]
  - Atrial fibrillation [Unknown]
  - Malignant mesenteric neoplasm [Unknown]

NARRATIVE: CASE EVENT DATE: 2020
